FAERS Safety Report 5323827-0 (Version None)
Quarter: 2007Q2

REPORT INFORMATION
  Report Type: 
  Country: None (occurrence: None)
  Receive Date: 20070514
  Receipt Date: 20070504
  Transmission Date: 20071010
  Serious: Yes (Other)
  Sender: FDA-Public Use
  Company Number: B0469960A

PATIENT
  Age: 11 Year
  Sex: Male

DRUGS (7)
  1. LAMICTAL [Suspect]
     Route: 048
     Dates: start: 20070201
  2. LOXAPAC [Concomitant]
     Route: 065
  3. RIVOTRIL [Concomitant]
     Route: 065
  4. RISPERDAL [Concomitant]
     Route: 065
  5. LEPTICUR [Concomitant]
     Route: 065
  6. THERALENE [Concomitant]
     Route: 065
  7. SULFARLEM [Concomitant]
     Route: 065

REACTIONS (6)
  - ACTIVATED PARTIAL THROMBOPLASTIN TIME PROLONGED [None]
  - BLEEDING TIME PROLONGED [None]
  - COAGULOPATHY [None]
  - EPISTAXIS [None]
  - HYPOCHROMIC ANAEMIA [None]
  - PROTHROMBIN LEVEL DECREASED [None]
